FAERS Safety Report 12130808 (Version 1)
Quarter: 2016Q1

REPORT INFORMATION
  Report Type: Spontaneous
  Country: US (occurrence: None)
  Receive Date: 20160229
  Receipt Date: 20160229
  Transmission Date: 20160526
  Serious: Yes (Disabling, Other)
  Sender: FDA-Public Use
  Company Number: None

PATIENT
  Age: 57 Year
  Sex: Female
  Weight: 89.36 kg

DRUGS (10)
  1. GABAPENTIN. [Concomitant]
     Active Substance: GABAPENTIN
  2. BOOT FOR FOOT [Concomitant]
  3. LEVOTHYROXINE. [Concomitant]
     Active Substance: LEVOTHYROXINE
  4. PROBIOTICS [Concomitant]
     Active Substance: PROBIOTICS NOS
  5. ALBURTAL [Concomitant]
  6. METOPROLOL. [Concomitant]
     Active Substance: METOPROLOL
  7. CIPRO [Suspect]
     Active Substance: CIPROFLOXACIN HYDROCHLORIDE
     Indication: URINARY TRACT INFECTION
     Dosage: 2X5DAY
     Route: 048
     Dates: start: 20151024, end: 20151025
  8. AIPRAZOLAM [Concomitant]
  9. MULTIVITAMIN [Concomitant]
     Active Substance: VITAMINS
  10. VITAMIN D [Concomitant]
     Active Substance: CHOLECALCIFEROL

REACTIONS (20)
  - Blood urine present [None]
  - Vision blurred [None]
  - Abasia [None]
  - Arthropathy [None]
  - Bursitis [None]
  - Visual field defect [None]
  - Asthenia [None]
  - Joint effusion [None]
  - Abdominal pain [None]
  - Diarrhoea [None]
  - Visual acuity reduced [None]
  - Muscular weakness [None]
  - Photophobia [None]
  - Eye pain [None]
  - Tendonitis [None]
  - Tendon rupture [None]
  - Nausea [None]
  - Muscle strain [None]
  - Abdominal pain upper [None]
  - Haematochezia [None]

NARRATIVE: CASE EVENT DATE: 20151026
